FAERS Safety Report 8793500 (Version 1)
Quarter: 2012Q4

REPORT INFORMATION
  Report Type: 
  Country: SE (occurrence: SE)
  Receive Date: 20120917
  Receipt Date: 20120917
  Transmission Date: 20130627
  Serious: Yes (Other)
  Sender: FDA-Public Use
  Company Number: SE-ASTRAZENECA-2012SE70207

PATIENT
  Age: 91 Year
  Sex: Female

DRUGS (6)
  1. AMIAS [Suspect]
     Indication: ESSENTIAL HYPERTENSION
     Route: 048
     Dates: start: 201203, end: 201203
  2. METOMYLAN [Suspect]
     Indication: ESSENTIAL HYPERTENSION
     Route: 065
     Dates: start: 201203, end: 201203
  3. VAGIFEM [Concomitant]
  4. VESICARE [Concomitant]
  5. HIPREX [Concomitant]
  6. FUROSEMID [Concomitant]

REACTIONS (6)
  - Alopecia [Not Recovered/Not Resolved]
  - Face oedema [Recovered/Resolved]
  - Pruritus [Recovered/Resolved]
  - Rhinitis [Recovered/Resolved]
  - Headache [Recovered/Resolved]
  - Insomnia [Recovered/Resolved]
